FAERS Safety Report 25207697 (Version 2)
Quarter: 2025Q2

REPORT INFORMATION
  Report Type: Spontaneous
  Country: US (occurrence: US)
  Receive Date: 20250417
  Receipt Date: 20250425
  Transmission Date: 20250716
  Serious: No
  Sender: BAYER HEALTHCARE PHARMACEUTICALS INC.
  Company Number: US-BAYER-2025A050191

PATIENT
  Age: 51 Year
  Sex: Female

DRUGS (1)
  1. MIRENA [Suspect]
     Active Substance: LEVONORGESTREL
     Indication: Intrauterine contraception
     Dosage: 20?G/DAY
     Route: 015
     Dates: start: 202409

REACTIONS (7)
  - Mood altered [None]
  - Depressed mood [None]
  - Depression [None]
  - Feeling of despair [None]
  - Tremor [None]
  - Formication [None]
  - Stress [None]

NARRATIVE: CASE EVENT DATE: 20250201
